FAERS Safety Report 5216895-8 (Version None)
Quarter: 2007Q1

REPORT INFORMATION
  Report Type: 
  Country: None (occurrence: None)
  Receive Date: 20070119
  Receipt Date: 20070108
  Transmission Date: 20070707
  Serious: Yes (Disabling)
  Sender: FDA-Public Use
  Company Number: 2007EU000092

PATIENT
  Sex: Female
  Weight: 85 kg

DRUGS (1)
  1. PROGRAF [Suspect]
     Indication: LIVER TRANSPLANT
     Dosage: 3 MG BID ORAL
     Route: 048
     Dates: start: 20051222

REACTIONS (4)
  - CHONDROPATHY [None]
  - JOINT EFFUSION [None]
  - MUSCULAR WEAKNESS [None]
  - OEDEMA PERIPHERAL [None]
